FAERS Safety Report 13016931 (Version 2)
Quarter: 2018Q1

REPORT INFORMATION
  Report Type: Report from Study
  Country: IN (occurrence: IN)
  Receive Date: 20161212
  Receipt Date: 20180222
  Transmission Date: 20180508
  Serious: Yes (Hospitalization)
  Sender: FDA-Public Use
  Company Number: PHHY2012IN023180

PATIENT
  Sex: Male

DRUGS (3)
  1. GLIVEC [Suspect]
     Active Substance: IMATINIB MESYLATE
     Dosage: 600 MG
     Route: 065
  2. GLIVEC [Suspect]
     Active Substance: IMATINIB MESYLATE
     Indication: CHRONIC MYELOID LEUKAEMIA
     Dosage: 400 MG
     Route: 065
  3. GLIVEC [Suspect]
     Active Substance: IMATINIB MESYLATE
     Dosage: 800 MG
     Route: 065

REACTIONS (8)
  - Lung infection [Unknown]
  - Pneumonia [Unknown]
  - Drug resistance [Unknown]
  - Pharyngitis [Unknown]
  - Therapeutic response decreased [Unknown]
  - Gene mutation [Unknown]
  - Pleural effusion [Unknown]
  - Pyrexia [Unknown]
